FAERS Safety Report 4320591-9 (Version None)
Quarter: 2004Q1

REPORT INFORMATION
  Report Type: 
  Country: None (occurrence: None)
  Receive Date: 20040319
  Receipt Date: 20040319
  Transmission Date: 20041129
  Serious: Yes (Hospitalization)
  Sender: FDA-Public Use
  Company Number: None

PATIENT
  Sex: Female
  Weight: 65.7716 kg

DRUGS (9)
  1. PROCRIT 40, 000 U/CC [Suspect]
     Indication: ANAEMIA
     Dosage: 26, 000 U SQ QW
     Route: 058
     Dates: start: 20040223
  2. PROCRIT 40, 000 U/CC [Suspect]
     Indication: CHEMOTHERAPY
     Dosage: 26, 000 U SQ QW
     Route: 058
     Dates: start: 20040223
  3. PROCRIT 40, 000 U/CC [Suspect]
     Indication: ANAEMIA
     Dosage: 26, 000 U SQ QW
     Route: 058
     Dates: start: 20040301
  4. PROCRIT 40, 000 U/CC [Suspect]
     Indication: CHEMOTHERAPY
     Dosage: 26, 000 U SQ QW
     Route: 058
     Dates: start: 20040301
  5. PREVACID [Concomitant]
  6. GLUCOTROL [Concomitant]
  7. ACCUPRIL [Concomitant]
  8. NORVASC [Concomitant]
  9. GEMCITABINE [Concomitant]

REACTIONS (3)
  - BILE DUCT OBSTRUCTION [None]
  - JAUNDICE CHOLESTATIC [None]
  - PANCREATIC CARCINOMA [None]
